FAERS Safety Report 9417645 (Version 1)
Quarter: 2013Q3

REPORT INFORMATION
  Report Type: Spontaneous
  Country: DE (occurrence: DE)
  Receive Date: 20130724
  Receipt Date: 20130724
  Transmission Date: 20140515
  Serious: Yes (Other)
  Sender: FDA-Public Use
  Company Number: DE-JNJFOC-20130710525

PATIENT
  Sex: Male

DRUGS (2)
  1. REMICADE [Suspect]
     Indication: ANKYLOSING SPONDYLITIS
     Dosage: TOTAL 38 INFUSIONS WERE TAKEN AT THE TIME OF THIS REPORT
     Route: 042
  2. REMICADE [Suspect]
     Indication: ANKYLOSING SPONDYLITIS
     Dosage: TOTAL 38 INFUSIONS WERE TAKEN AT THE TIME OF THIS REPORT
     Route: 042

REACTIONS (1)
  - Acute myeloid leukaemia [Unknown]
